FAERS Safety Report 5452909-8 (Version None)
Quarter: 2007Q3

REPORT INFORMATION
  Report Type: 
  Country: None (occurrence: None)
  Receive Date: 20070914
  Receipt Date: 20070910
  Transmission Date: 20080115
  Serious: Yes (Hospitalization, Disabling)
  Sender: FDA-Public Use
  Company Number: B0485956A

PATIENT
  Age: 70 Year
  Sex: Female

DRUGS (3)
  1. VALTREX [Suspect]
     Indication: HERPES ZOSTER
     Dosage: 500MG THREE TIMES PER DAY
     Route: 048
     Dates: start: 20070831, end: 20070901
  2. ARASENA-A [Concomitant]
     Route: 061
     Dates: start: 20070821
  3. NAPROXEN [Concomitant]
     Route: 048
     Dates: start: 20070831

REACTIONS (3)
  - DEPRESSED LEVEL OF CONSCIOUSNESS [None]
  - DYSKINESIA [None]
  - VOMITING [None]
